FAERS Safety Report 20059977 (Version 1)
Quarter: 2021Q4

REPORT INFORMATION
  Report Type: Spontaneous
  Country: JP (occurrence: JP)
  Receive Date: 20211111
  Receipt Date: 20211111
  Transmission Date: 20220303
  Serious: Yes (Death, Other)
  Sender: FDA-Public Use
  Company Number: JP-JAZZ-2021-JP-005482

PATIENT
  Age: 68 Year
  Sex: Male
  Weight: 72 kg

DRUGS (1)
  1. DEFITELIO [Suspect]
     Active Substance: DEFIBROTIDE SODIUM
     Indication: Venoocclusive liver disease
     Dosage: 22 MG/KG/DAY
     Route: 042
     Dates: start: 20191228, end: 20200116

REACTIONS (3)
  - Gastrointestinal haemorrhage [Not Recovered/Not Resolved]
  - Myelodysplastic syndrome [Fatal]
  - Off label use [Unknown]

NARRATIVE: CASE EVENT DATE: 20191228
